FAERS Safety Report 6102063-4 (Version None)
Quarter: 2009Q1

REPORT INFORMATION
  Report Type: 
  Country: None (occurrence: None)
  Receive Date: 20090304
  Receipt Date: 20090303
  Transmission Date: 20090719
  Serious: Yes (Hospitalization)
  Sender: FDA-Public Use
  Company Number: US-RB-010515-09

PATIENT

DRUGS (2)
  1. SUBUTEX [Suspect]
     Route: 064
     Dates: start: 20080316, end: 20081101
  2. SUBOXONE [Suspect]
     Route: 064
     Dates: start: 20080201, end: 20080312

REACTIONS (2)
  - DRUG EXPOSURE DURING PREGNANCY [None]
  - TREMOR [None]
